APPROVED DRUG PRODUCT: LIDOCAINE HYDROCHLORIDE
Active Ingredient: LIDOCAINE HYDROCHLORIDE
Strength: 2%
Dosage Form/Route: SOLUTION;ORAL
Application: A216780 | Product #001 | TE Code: AT
Applicant: RUBICON RESEARCH LTD
Approved: Mar 28, 2023 | RLD: No | RS: Yes | Type: RX